FAERS Safety Report 4817735-9 (Version None)
Quarter: 2005Q3

REPORT INFORMATION
  Report Type: 
  Country: None (occurrence: None)
  Receive Date: 20050929
  Receipt Date: 20050728
  Transmission Date: 20060218
  Serious: No
  Sender: FDA-Public Use
  Company Number: 05P-163-0306948-00

PATIENT
  Age: 56 Year
  Sex: Female
  Weight: 68.0396 kg

DRUGS (4)
  1. HUMIRA [Suspect]
     Indication: RHEUMATOID ARTHRITIS
     Dosage: 40 MG, 1 IN 2 WK, SUBCUTANEOUS
     Route: 058
     Dates: start: 20030101
  2. CYCLOBENZAPRINE HCL [Concomitant]
  3. PAIN PATCH [Concomitant]
  4. PAIN MEDICATIONS [Concomitant]

REACTIONS (3)
  - FALL [None]
  - HEADACHE [None]
  - VISION BLURRED [None]
